FAERS Safety Report 4565795-5 (Version None)
Quarter: 2005Q1

REPORT INFORMATION
  Report Type: 
  Country: None (occurrence: None)
  Receive Date: 20050128
  Receipt Date: 20050119
  Transmission Date: 20050727
  Serious: Yes (Death, Life-Threatening, Hospitalization)
  Sender: FDA-Public Use
  Company Number: 2005006201

PATIENT
  Age: 36 Year
  Sex: Male
  Weight: 80 kg

DRUGS (10)
  1. ALDACTONE [Suspect]
     Indication: ILL-DEFINED DISORDER
  2. NEURONTIN [Suspect]
     Indication: HIV INFECTION
     Dosage: 1200 MG (400 MG, INTERVAL: EVERY DAY) ORAL
     Route: 048
     Dates: start: 20020101, end: 20041001
  3. ZIDOVUDINE W/LAMIVUDINE (LAMIVUDINE, ZIDOVUDINE) [Suspect]
     Indication: HIV INFECTION
     Dosage: 300 MG (150 MG, INTERVAL: EVERY DAY), ORAL
     Route: 048
     Dates: start: 20020101, end: 20041001
  4. PEGINTERFERON ALFA-2B (PEGINTERFERON ALFA-2B) [Suspect]
     Indication: HEPATITIS B VIRUS
     Dosage: SUBCUTANEOUS
     Route: 058
     Dates: end: 20040101
  5. RIBAVIRIN [Suspect]
     Indication: HEPATITIS B VIRUS
     Dosage: 1 GRAM (1 IN 1 D), ORAL
     Route: 048
     Dates: end: 20041001
  6. KALETRA [Suspect]
     Indication: HIV INFECTION
     Dosage: (2 IN 1 D), ORAL
     Route: 048
     Dates: end: 20041001
  7. BUPRENORPHINE HYDROCHLORIDE [Concomitant]
  8. MINOCYCLINE HCL [Concomitant]
  9. CLARITHROMYCIN [Concomitant]
  10. PENTAMIDINE ISETHIONATE [Concomitant]

REACTIONS (7)
  - CHILLS [None]
  - COAGULATION FACTOR V LEVEL DECREASED [None]
  - HEPATIC ENCEPHALOPATHY [None]
  - HEPATIC FAILURE [None]
  - PLATELET COUNT DECREASED [None]
  - PROTHROMBIN TIME PROLONGED [None]
  - PYREXIA [None]
